FAERS Safety Report 6022437-X (Version None)
Quarter: 2008Q4

REPORT INFORMATION
  Report Type: 
  Country: None (occurrence: None)
  Receive Date: 20081223
  Receipt Date: 20081215
  Transmission Date: 20090506
  Serious: Yes (Hospitalization, Other)
  Sender: FDA-Public Use
  Company Number: 100#08#2008-06279

PATIENT
  Age: 64 Year
  Sex: Male

DRUGS (3)
  1. METHOTREXATE [Suspect]
     Indication: RHEUMATOID ARTHRITIS
     Dosage: 2.5 MG TWICE DAILY
     Route: 048
  2. MOXIFLOXACIN HCL [Concomitant]
  3. METHYLPREDNISOLONE 16MG TAB [Concomitant]

REACTIONS (15)
  - ALANINE AMINOTRANSFERASE INCREASED [None]
  - ASPARTATE AMINOTRANSFERASE INCREASED [None]
  - ASTHENIA [None]
  - BLOOD ALBUMIN DECREASED [None]
  - BLOOD UREA INCREASED [None]
  - C-REACTIVE PROTEIN INCREASED [None]
  - DECREASED APPETITE [None]
  - HYPOTENSION [None]
  - JAUNDICE [None]
  - NAUSEA [None]
  - PANCYTOPENIA [None]
  - PROTEIN TOTAL DECREASED [None]
  - PYREXIA [None]
  - SKIN ULCER [None]
  - VOMITING [None]
